FAERS Safety Report 24650391 (Version 1)
Quarter: 2024Q4

REPORT INFORMATION
  Report Type: Spontaneous
  Country: FR (occurrence: FR)
  Receive Date: 20241122
  Receipt Date: 20241122
  Transmission Date: 20250114
  Serious: Yes (Hospitalization)
  Sender: ACCORD
  Company Number: None

PATIENT
  Age: 34 Year
  Sex: Male
  Weight: 94 kg

DRUGS (4)
  1. FLUOXETINE [Suspect]
     Active Substance: FLUOXETINE HYDROCHLORIDE
     Indication: Schizophrenia
     Dosage: 20 MG, CAPSULE
     Dates: end: 20241001
  2. OLANZAPINE [Suspect]
     Active Substance: OLANZAPINE
     Indication: Schizophrenia
     Dosage: 10 MG COATED TABLET
     Dates: end: 20241001
  3. PRAZEPAM [Suspect]
     Active Substance: PRAZEPAM
     Indication: Schizophrenia
     Dosage: 10 MG, TABLET
     Dates: end: 20241001
  4. CYAMEMAZINE [Suspect]
     Active Substance: CYAMEMAZINE
     Indication: Schizophrenia
     Dosage: 25 MG, SCORED FILM-COATED TABLET?25 MG IN THE MORNING AND 75 MG IN THE EVENING
     Dates: end: 20241001

REACTIONS (1)
  - Rhabdomyolysis [Not Recovered/Not Resolved]

NARRATIVE: CASE EVENT DATE: 20241002
